FAERS Safety Report 24464135 (Version 1)
Quarter: 2024Q4

REPORT INFORMATION
  Report Type: Report from Study
  Country: US (occurrence: US)
  Receive Date: 20241018
  Receipt Date: 20241018
  Transmission Date: 20250114
  Serious: No
  Sender: ROCHE
  Company Number: US-ROCHE-3498886

PATIENT
  Sex: Male

DRUGS (16)
  1. XOLAIR [Suspect]
     Active Substance: OMALIZUMAB
     Indication: Asthma
     Route: 058
     Dates: start: 20231128
  2. XOLAIR [Suspect]
     Active Substance: OMALIZUMAB
  3. KLONOPIN [Suspect]
     Active Substance: CLONAZEPAM
     Indication: Parasomnia
     Dosage: FREQUENCY TEXT:FOR 28 DAYS
     Route: 048
     Dates: start: 20240118
  4. NORVASC [Concomitant]
     Active Substance: AMLODIPINE BESYLATE
  5. FASENRA [Concomitant]
     Active Substance: BENRALIZUMAB
  6. VITAMIN D3 [Concomitant]
     Active Substance: CHOLECALCIFEROL
  7. EPINEPHRINE [Concomitant]
     Active Substance: EPINEPHRINE
  8. ALLEGRA-D [Concomitant]
     Active Substance: FEXOFENADINE HYDROCHLORIDE\PSEUDOEPHEDRINE HYDROCHLORIDE
  9. FLONASE [Concomitant]
     Active Substance: FLUTICASONE PROPIONATE
  10. TRELEGY ELLIPTA [Concomitant]
     Active Substance: FLUTICASONE FUROATE\UMECLIDINIUM BROMIDE\VILANTEROL TRIFENATATE
  11. HYDRODIURIL [Concomitant]
     Active Substance: HYDROCHLOROTHIAZIDE
  12. LISINOPRIL [Concomitant]
     Active Substance: LISINOPRIL
  13. PRILOSEC [Concomitant]
     Active Substance: OMEPRAZOLE MAGNESIUM
  14. DESYREL [Concomitant]
     Active Substance: TRAZODONE HYDROCHLORIDE
  15. KENALOG [Concomitant]
     Active Substance: TRIAMCINOLONE ACETONIDE
  16. VENTOLIN [Concomitant]
     Active Substance: ALBUTEROL SULFATE

REACTIONS (3)
  - Off label use [Unknown]
  - Off label use [Unknown]
  - No adverse event [Unknown]
